FAERS Safety Report 4465374-4 (Version None)
Quarter: 2004Q3

REPORT INFORMATION
  Report Type: 
  Country: None (occurrence: None)
  Receive Date: 20040930
  Receipt Date: 20040916
  Transmission Date: 20050211
  Serious: Yes (Disabling)
  Sender: FDA-Public Use
  Company Number: 2004-BP-07495NB

PATIENT
  Age: 72 Year
  Sex: Male

DRUGS (3)
  1. PERSANTIN [Suspect]
     Indication: HYPERTENSION
     Dosage: 37.5 MG(12.5 MG)  PO
     Route: 048
     Dates: start: 20000101, end: 20040801
  2. DIOVAN (TA) [Suspect]
     Indication: HYPERTENSION
     Dosage: PO
     Route: 048
     Dates: start: 20000101, end: 20040801
  3. BEZAFIBRATE (BEZAFIBRATE) [Concomitant]

REACTIONS (1)
  - INTERSTITIAL LUNG DISEASE [None]
